FAERS Safety Report 5494777-4 (Version None)
Quarter: 2007Q4

REPORT INFORMATION
  Report Type: 
  Country: None (occurrence: None)
  Receive Date: 20071024
  Receipt Date: 20071019
  Transmission Date: 20080405
  Serious: Yes (Hospitalization, Disabling)
  Sender: FDA-Public Use
  Company Number: DE-BRISTOL-MYERS SQUIBB COMPANY-13893581

PATIENT
  Age: 50 Year
  Sex: Female

DRUGS (1)
  1. COAPROVEL TABS 300MG/ 25MG [Suspect]
     Indication: HYPERTENSION
     Dosage: DOSE- HALF TABLET OF 300MG/25MG DAILY FOR 4 WEEKS TILL 25-AUG-07. SINCE 26-AUG-07 300MG/25MG DAILY.
     Route: 048
     Dates: start: 20070826

REACTIONS (4)
  - ANGINA PECTORIS [None]
  - DIZZINESS [None]
  - HEART RATE INCREASED [None]
  - MENTAL IMPAIRMENT [None]
